FAERS Safety Report 16360059 (Version 1)
Quarter: 2019Q2

REPORT INFORMATION
  Report Type: Spontaneous
  Country: US (occurrence: US)
  Receive Date: 20190528
  Receipt Date: 20190528
  Transmission Date: 20190711
  Serious: No
  Sender: FDA-Public Use
  Company Number: US-GLENMARK PHARMACEUTICALS-2019GMK039302

PATIENT

DRUGS (1)
  1. MUPIROCIN OINTMENT USP, 2% [Suspect]
     Active Substance: MUPIROCIN
     Indication: POSTOPERATIVE CARE
     Dosage: UNK, (ONCE OR TWICE A DAY), SMALL AMOUNT TO COVER THE STITCHES
     Route: 061
     Dates: start: 201812

REACTIONS (3)
  - Pain [Recovered/Resolved]
  - Product use in unapproved indication [Unknown]
  - Application site irritation [Recovered/Resolved]
